FAERS Safety Report 6920384-X (Version None)
Quarter: 2010Q3

REPORT INFORMATION
  Report Type: 
  Country: None (occurrence: None)
  Receive Date: 20100804
  Receipt Date: 20100223
  Transmission Date: 20110219
  Serious: No
  Sender: FDA-Public Use
  Company Number: 2010-0638

PATIENT
  Age: 63 Year
  Sex: Male
  Weight: 108.8 kg

DRUGS (3)
  1. SOMATULINE DEPOT [Suspect]
     Indication: ACROMEGALY
     Dosage: 120 MG (120 MG,1 IN 4 WK), SUBCUTANEOUS
     Route: 058
     Dates: start: 20091101
  2. SOMAVERT INJECTION (PEGVISOMANT) [Concomitant]
  3. MULTIPLE MEDICATION (DESCRIBED AS ^A LOT^) (ALL OTHER THERAPEUTIC PROD [Concomitant]

REACTIONS (3)
  - INJECTION SITE NODULE [None]
  - INJECTION SITE PAIN [None]
  - INJECTION SITE PRURITUS [None]
